FAERS Safety Report 12360064 (Version 2)
Quarter: 2016Q2

REPORT INFORMATION
  Report Type: Report from Study
  Country: US (occurrence: US)
  Receive Date: 20160512
  Receipt Date: 20160530
  Transmission Date: 20160815
  Serious: Yes (Other)
  Sender: FDA-Public Use
  Company Number: US-GILEAD-2016-0212778

PATIENT
  Age: 71 Year
  Sex: Female

DRUGS (15)
  1. LEVAQUIN [Concomitant]
     Active Substance: LEVOFLOXACIN
  2. EFFIENT [Concomitant]
     Active Substance: PRASUGREL HYDROCHLORIDE
  3. OMEPRAZOLE. [Concomitant]
     Active Substance: OMEPRAZOLE
  4. ALPRAZOLAM. [Concomitant]
     Active Substance: ALPRAZOLAM
  5. OPSUMIT [Concomitant]
     Active Substance: MACITENTAN
  6. AMBRISENTAN [Suspect]
     Active Substance: AMBRISENTAN
     Indication: PULMONARY HYPERTENSION
     Dosage: 5 MG, QD
     Route: 065
     Dates: start: 20140418, end: 20160505
  7. MYCOPHENOLATE [Concomitant]
     Active Substance: MYCOPHENOLIC ACID
  8. ASPIRIN                            /00002701/ [Concomitant]
     Active Substance: ASPIRIN
  9. NIFEDIPINE. [Concomitant]
     Active Substance: NIFEDIPINE
  10. CALCIUM [Concomitant]
     Active Substance: CALCIUM
  11. SERTRALINE HCL [Concomitant]
     Active Substance: SERTRALINE HYDROCHLORIDE
  12. AZATHIOPRINE. [Concomitant]
     Active Substance: AZATHIOPRINE
  13. VITAMIN D                          /00107901/ [Concomitant]
     Active Substance: ERGOCALCIFEROL
  14. TYLENOL [Concomitant]
     Active Substance: ACETAMINOPHEN
  15. CRESTOR [Concomitant]
     Active Substance: ROSUVASTATIN CALCIUM

REACTIONS (1)
  - Pulmonary fibrosis [Unknown]

NARRATIVE: CASE EVENT DATE: 20151105
